FAERS Safety Report 22030075 (Version 2)
Quarter: 2023Q1

REPORT INFORMATION
  Report Type: Spontaneous
  Country: US (occurrence: US)
  Receive Date: 20230223
  Receipt Date: 20230306
  Transmission Date: 20230418
  Serious: Yes (Life-Threatening, Hospitalization)
  Sender: FDA-Public Use
  Company Number: US-TEVA-2023-US-2857534

PATIENT
  Age: 17 Year
  Sex: Female

DRUGS (7)
  1. LEVETIRACETAM [Suspect]
     Active Substance: LEVETIRACETAM
     Indication: Encephalitis autoimmune
     Dosage: 60 MG/ KG
     Route: 065
  2. MIDAZOLAM [Suspect]
     Active Substance: MIDAZOLAM
     Indication: Encephalitis autoimmune
     Dosage: 1.5 MG/KG/HOURS
     Route: 065
  3. PHENOBARBITAL [Suspect]
     Active Substance: PHENOBARBITAL
     Indication: Encephalitis autoimmune
     Dosage: 30 MG/KG
     Route: 065
  4. FOSPHENYTOIN [Suspect]
     Active Substance: FOSPHENYTOIN
     Indication: Encephalitis autoimmune
     Dosage: 60 MG/KG
     Route: 065
  5. LACOSAMIDE [Suspect]
     Active Substance: LACOSAMIDE
     Indication: Encephalitis autoimmune
     Dosage: 6 MG/KG
     Route: 065
  6. PENTOBARBITAL [Suspect]
     Active Substance: PENTOBARBITAL
     Indication: Encephalitis autoimmune
     Dosage: RECEIVED BOLUS , 500 MG
     Route: 065
  7. PENTOBARBITAL [Suspect]
     Active Substance: PENTOBARBITAL
     Dosage: RECEIVED INFUSION , 1.5 MG/KG/HOURS
     Route: 065

REACTIONS (6)
  - Drug ineffective [Unknown]
  - Metabolic acidosis [Recovered/Resolved]
  - Reaction to excipient [Recovered/Resolved]
  - Toxicity to various agents [Unknown]
  - Lactic acidosis [Recovered/Resolved]
  - Distributive shock [Recovered/Resolved]
